FAERS Safety Report 6664102-1 (Version None)
Quarter: 2010Q2

REPORT INFORMATION
  Report Type: 
  Country: None (occurrence: None)
  Receive Date: 20100401
  Receipt Date: 20100329
  Transmission Date: 20101027
  Serious: Yes (Hospitalization)
  Sender: FDA-Public Use
  Company Number: A0852891A

PATIENT
  Age: 57 Year
  Sex: Female

DRUGS (1)
  1. AVANDIA [Suspect]
     Indication: DIABETES MELLITUS
     Dosage: 4MG PER DAY
     Route: 048
     Dates: start: 20000101, end: 20070101

REACTIONS (4)
  - CARDIAC FAILURE CONGESTIVE [None]
  - CEREBROVASCULAR ACCIDENT [None]
  - FRACTURE [None]
  - HEART INJURY [None]
